FAERS Safety Report 24781651 (Version 2)
Quarter: 2024Q4

REPORT INFORMATION
  Report Type: Report from Study
  Country: IT (occurrence: IT)
  Receive Date: 20241227
  Receipt Date: 20241231
  Transmission Date: 20250115
  Serious: Yes (Hospitalization)
  Sender: NOVARTIS
  Company Number: IT-002147023-NVSC2024IT226143

PATIENT
  Age: 5 Year
  Sex: Female
  Weight: 15 kg

DRUGS (8)
  1. ENTRESTO [Suspect]
     Active Substance: SACUBITRIL\VALSARTAN
     Indication: Cardiac failure chronic
     Dosage: 5 MG, BID (15/16 MG)
     Route: 048
     Dates: start: 20240613, end: 20241107
  2. ENTRESTO [Suspect]
     Active Substance: SACUBITRIL\VALSARTAN
     Indication: Left ventricular dysfunction
  3. ENTRESTO [Suspect]
     Active Substance: SACUBITRIL\VALSARTAN
     Indication: Dilated cardiomyopathy
  4. CARVEDILOL [Concomitant]
     Active Substance: CARVEDILOL
     Indication: Product used for unknown indication
     Dosage: 0.5 MG/KG, QD
     Route: 065
     Dates: start: 202003, end: 20241107
  5. FUROSEMIDE [Concomitant]
     Active Substance: FUROSEMIDE
     Indication: Product used for unknown indication
     Dosage: 4.2 MG/KG, QD
     Route: 065
     Dates: start: 202003
  6. SPIRONOLACTONE [Concomitant]
     Active Substance: SPIRONOLACTONE
     Indication: Product used for unknown indication
     Dosage: 1 MG/KG, QD
     Route: 065
     Dates: start: 202003
  7. WARFARIN [Concomitant]
     Active Substance: WARFARIN
     Indication: Product used for unknown indication
     Dosage: 0.13 MG/KG, QD
     Route: 065
     Dates: start: 202003
  8. FLUENZ TETRA [Concomitant]
     Active Substance: INFLUENZA VIRUS VACCINE
     Indication: Product used for unknown indication
     Dosage: SPRAY
     Route: 065
     Dates: start: 20241031

REACTIONS (3)
  - Cardiac failure [Not Recovered/Not Resolved]
  - Hypotension [Unknown]
  - Drug ineffective [Not Recovered/Not Resolved]

NARRATIVE: CASE EVENT DATE: 20240613
